FAERS Safety Report 10281810 (Version 1)
Quarter: 2014Q3

REPORT INFORMATION
  Report Type: Spontaneous
  Country: IT (occurrence: IT)
  Receive Date: 20140707
  Receipt Date: 20140707
  Transmission Date: 20150326
  Serious: Yes (Hospitalization)
  Sender: FDA-Public Use
  Company Number: PHHY2014IT081820

PATIENT
  Age: 91 Year
  Sex: Male

DRUGS (10)
  1. AVODART [Concomitant]
     Active Substance: DUTASTERIDE
     Indication: DYSURIA
     Dosage: UNK
     Dates: start: 20140301, end: 20140607
  2. HYDROCHLOROTHIAZIDE\VALSARTAN [Concomitant]
     Active Substance: HYDROCHLOROTHIAZIDE\VALSARTAN
     Dosage: UNK
  3. REPAGLINIDE. [Suspect]
     Active Substance: REPAGLINIDE
     Indication: TYPE 2 DIABETES MELLITUS
     Dosage: 4.5 MG, QD
     Route: 048
     Dates: start: 20130528
  4. PANTOPRAZOLE [Concomitant]
     Active Substance: PANTOPRAZOLE SODIUM
     Dosage: 20 MG, UNK
  5. NITROCOR [Concomitant]
     Active Substance: NITROGLYCERIN
     Dosage: 1 DF, UNK
     Route: 062
  6. ACETYLSALICYLIC ACID [Concomitant]
     Active Substance: ASPIRIN
     Indication: MYOCARDIAL ISCHAEMIA
     Dosage: 100 MG, UNK
     Dates: start: 20130601, end: 20130607
  7. LORAZEPAM. [Concomitant]
     Active Substance: LORAZEPAM
     Dosage: 2.5 MG, UNK
  8. BRILIQUE [Concomitant]
     Active Substance: TICAGRELOR
     Indication: MYOCARDIAL ISCHAEMIA
     Dosage: 2 DF, UNK
     Dates: start: 20130601, end: 20140607
  9. REPAGLINIDE. [Suspect]
     Active Substance: REPAGLINIDE
     Dosage: UNK UKN, UNK
     Route: 048
  10. RANEXA [Concomitant]
     Active Substance: RANOLAZINE
     Indication: ANGINA PECTORIS
     Dosage: 2 DF, UNK
     Dates: start: 20130806, end: 20140607

REACTIONS (1)
  - Hypoglycaemic coma [Recovered/Resolved]

NARRATIVE: CASE EVENT DATE: 20140607
